FAERS Safety Report 7624794-7 (Version None)
Quarter: 2011Q3

REPORT INFORMATION
  Report Type: 
  Country: None (occurrence: None)
  Receive Date: 20110720
  Receipt Date: 20090714
  Transmission Date: 20111222
  Serious: Yes (Death, Hospitalization)
  Sender: FDA-Public Use
  Company Number: US-AMGEN-US353773

PATIENT
  Age: 67 Year
  Sex: Female

DRUGS (4)
  1. PREDNISONE [Concomitant]
     Dosage: UNK UNK, UNK
     Route: 065
     Dates: start: 20081020
  2. NPLATE [Suspect]
     Dosage: 165 A?G/KG, UNK
     Dates: end: 20090618
  3. NPLATE [Suspect]
     Indication: IDIOPATHIC THROMBOCYTOPENIC PURPURA
     Dosage: 165 A?G, QWK
     Route: 058
     Dates: start: 20090416
  4. LISINOPRIL [Concomitant]
     Dosage: UNK UNK, UNK
     Route: 065
     Dates: start: 20080804

REACTIONS (4)
  - RENAL CANCER [None]
  - DEHYDRATION [None]
  - COLON CANCER [None]
  - LUNG NEOPLASM MALIGNANT [None]
